FAERS Safety Report 14512849 (Version 1)
Quarter: 2018Q1

REPORT INFORMATION
  Report Type: Spontaneous
  Country: US (occurrence: US)
  Receive Date: 20180209
  Receipt Date: 20180209
  Transmission Date: 20180509
  Serious: No
  Sender: FDA-Public Use
  Company Number: US-ALLERGAN-1707030US

PATIENT
  Sex: Female

DRUGS (3)
  1. PREDNISONE. [Concomitant]
     Active Substance: PREDNISONE
     Indication: EYE ULCER
     Dosage: UNK UNK, BI-WEEKLY
     Route: 047
  2. VIGAMOX [Concomitant]
     Active Substance: MOXIFLOXACIN HYDROCHLORIDE
     Indication: EYE ULCER
  3. RESTASIS [Suspect]
     Active Substance: CYCLOSPORINE
     Indication: DRY EYE
     Dosage: 2 GTT, BID
     Route: 047
     Dates: start: 201604

REACTIONS (7)
  - Herpes zoster [Recovered/Resolved]
  - Ocular discomfort [Not Recovered/Not Resolved]
  - Injury corneal [Recovered/Resolved]
  - Foreign body sensation in eyes [Recovered/Resolved]
  - Ulcerative keratitis [Recovered/Resolved]
  - Autoimmune thyroiditis [Recovered/Resolved]
  - Eye pain [Recovered/Resolved]
